FAERS Safety Report 17052541 (Version 1)
Quarter: 2019Q4

REPORT INFORMATION
  Report Type: Spontaneous
  Country: US (occurrence: US)
  Receive Date: 20191119
  Receipt Date: 20191119
  Transmission Date: 20200122
  Serious: No
  Sender: FDA-Public Use
  Company Number: None

PATIENT
  Sex: Female

DRUGS (1)
  1. XALKORI [Suspect]
     Active Substance: CRIZOTINIB
     Indication: LUNG NEOPLASM MALIGNANT
     Route: 048

REACTIONS (14)
  - Dizziness [None]
  - Cardiac disorder [None]
  - Somnolence [None]
  - Joint swelling [None]
  - Peripheral swelling [None]
  - Feeling abnormal [None]
  - Exercise tolerance decreased [None]
  - Fatigue [None]
  - Neuropathy peripheral [None]
  - Nausea [None]
  - Cognitive disorder [None]
  - Respiratory disorder [None]
  - Balance disorder [None]
  - Anxiety [None]
